FAERS Safety Report 20385757 (Version 1)
Quarter: 2022Q1

REPORT INFORMATION
  Report Type: Spontaneous
  Country: US (occurrence: US)
  Receive Date: 20220127
  Receipt Date: 20220127
  Transmission Date: 20220423
  Serious: No
  Sender: FDA-Public Use
  Company Number: US-ALLERGAN-2110933US

PATIENT
  Age: 49 Year
  Sex: Female

DRUGS (1)
  1. BOTOX [Suspect]
     Active Substance: ONABOTULINUMTOXINA
     Indication: Anorectal disorder
     Dosage: UNK, SINGLE
     Dates: start: 202101, end: 202101

REACTIONS (6)
  - Off label use [Unknown]
  - Headache [Not Recovered/Not Resolved]
  - Brow ptosis [Unknown]
  - Bell^s palsy [Unknown]
  - Pyrexia [Unknown]
  - Muscular weakness [Unknown]
